FAERS Safety Report 9470748 (Version 1)
Quarter: 2013Q3

REPORT INFORMATION
  Report Type: Report from Study
  Country: DE (occurrence: DE)
  Receive Date: 20130822
  Receipt Date: 20130822
  Transmission Date: 20140515
  Serious: Yes (Congenital Anomaly, Other)
  Sender: FDA-Public Use
  Company Number: DE-B.I. PHARMACEUTICALS,INC./RIDGEFIELD-2013-BI-24747BP

PATIENT
  Age: 0 Day
  Sex: Male
  Weight: .68 kg

DRUGS (3)
  1. VIRAMUNE [Suspect]
     Indication: EXPOSURE DURING PREGNANCY
     Dosage: 400 MG
     Route: 064
     Dates: start: 20060105
  2. EPIVIR 3 TC [Concomitant]
     Indication: EXPOSURE DURING PREGNANCY
     Dosage: 300 MG
     Route: 048
     Dates: start: 20060105
  3. RETROVIR [Concomitant]
     Indication: EXPOSURE DURING PREGNANCY
     Dosage: 100 MG
     Route: 042
     Dates: start: 20060425, end: 20060425

REACTIONS (4)
  - Deafness unilateral [Unknown]
  - Congenital cytomegalovirus infection [Unknown]
  - Low birth weight baby [Unknown]
  - Premature baby [Unknown]
